FAERS Safety Report 19484341 (Version 2)
Quarter: 2022Q3

REPORT INFORMATION
  Report Type: Report from Study
  Country: US (occurrence: US)
  Receive Date: 20210702
  Receipt Date: 20220901
  Transmission Date: 20221026
  Serious: Yes (Other)
  Sender: FDA-Public Use
  Company Number: US-BIOGEN-2021BI01026690

PATIENT
  Age: 55 Year
  Sex: Male

DRUGS (1)
  1. TECFIDERA [Suspect]
     Active Substance: DIMETHYL FUMARATE
     Indication: Multiple sclerosis
     Dosage: MAINTENANCE DOSE
     Route: 050
     Dates: start: 20171219

REACTIONS (3)
  - Cerebrovascular accident [Recovered/Resolved]
  - Respiratory arrest [Recovered/Resolved]
  - Lupus pleurisy [Not Recovered/Not Resolved]

NARRATIVE: CASE EVENT DATE: 20210501
